FAERS Safety Report 9796697 (Version 1)
Quarter: 2014Q1

REPORT INFORMATION
  Report Type: Spontaneous
  Country: US (occurrence: US)
  Receive Date: 20140103
  Receipt Date: 20140103
  Transmission Date: 20141002
  Serious: Yes (Other)
  Sender: FDA-Public Use
  Company Number: US-ALLERGAN-1320237US

PATIENT
  Age: 84 Year
  Sex: Male

DRUGS (1)
  1. OZURDEX [Suspect]
     Indication: MACULAR OEDEMA
     Dosage: 0.7 MG, SINGLE
     Route: 031

REACTIONS (5)
  - Visual acuity reduced [Recovering/Resolving]
  - Device dislocation [Recovered/Resolved]
  - Eye pain [Unknown]
  - Corneal oedema [Unknown]
  - Conjunctival hyperaemia [Unknown]
